FAERS Safety Report 17360826 (Version 1)
Quarter: 2020Q1

REPORT INFORMATION
  Report Type: Spontaneous
  Country: GR (occurrence: GR)
  Receive Date: 20200203
  Receipt Date: 20200203
  Transmission Date: 20200409
  Serious: Yes (Other)
  Sender: FDA-Public Use
  Company Number: GR-GLAXOSMITHKLINE-GR2019EME158934

PATIENT

DRUGS (6)
  1. CEFUROXIME. [Suspect]
     Active Substance: CEFUROXIME
     Indication: PELVIC INFLAMMATORY DISEASE
     Dosage: 750 MG, TID
  2. CEFUROXIME. [Suspect]
     Active Substance: CEFUROXIME
     Indication: PELVIC ABSCESS
  3. DOXYCYCLINE. [Suspect]
     Active Substance: DOXYCYCLINE
     Indication: PELVIC ABSCESS
  4. DOXYCYCLINE. [Suspect]
     Active Substance: DOXYCYCLINE
     Indication: PELVIC INFLAMMATORY DISEASE
     Dosage: 100 MG, BID
     Route: 048
  5. METRONIDAZOLE. [Suspect]
     Active Substance: METRONIDAZOLE
     Indication: PELVIC INFLAMMATORY DISEASE
     Dosage: 500 MG, TID
     Route: 042
  6. METRONIDAZOLE. [Suspect]
     Active Substance: METRONIDAZOLE
     Indication: PELVIC ABSCESS

REACTIONS (4)
  - Drug ineffective [Unknown]
  - Pelvic inflammatory disease [Recovered/Resolved]
  - Pelvic abscess [Recovered/Resolved]
  - Condition aggravated [Recovered/Resolved]
